FAERS Safety Report 13612842 (Version 1)
Quarter: 2017Q2

REPORT INFORMATION
  Report Type: Spontaneous
  Country: US (occurrence: US)
  Receive Date: 20170605
  Receipt Date: 20170605
  Transmission Date: 20170830
  Serious: No
  Sender: FDA-Public Use
  Company Number: US-APOTEX-2016AP014939

PATIENT
  Sex: Male

DRUGS (1)
  1. ZOLPIDEM TARTRATE. [Suspect]
     Active Substance: ZOLPIDEM TARTRATE
     Indication: HYPOXIC-ISCHAEMIC ENCEPHALOPATHY
     Dosage: UNK
     Route: 065

REACTIONS (1)
  - Lethargy [Unknown]
